FAERS Safety Report 14304778 (Version 1)
Quarter: 2017Q4

REPORT INFORMATION
  Report Type: Spontaneous
  Country: JP (occurrence: JP)
  Receive Date: 20171219
  Receipt Date: 20171219
  Transmission Date: 20180321
  Serious: Yes (Hospitalization, Other)
  Sender: FDA-Public Use
  Company Number: JP-OTSUKA-03100-JPN-07-0076

PATIENT
  Age: 34 Year
  Sex: Female

DRUGS (10)
  1. WYPAX [Concomitant]
     Active Substance: LORAZEPAM
     Indication: SCHIZOPHRENIA
     Route: 048
     Dates: start: 20060712, end: 20070222
  2. ROHYPNOL [Suspect]
     Active Substance: FLUNITRAZEPAM
     Indication: INSOMNIA
     Route: 048
     Dates: start: 20060703
  3. PL [Concomitant]
     Active Substance: ACETAMINOPHEN\CAFFEINE\PROMETHAZINE\SALICYLAMIDE
     Indication: NASOPHARYNGITIS
     Route: 048
     Dates: start: 20070113, end: 20070117
  4. HERBAL MIXTURE [Concomitant]
     Active Substance: HERBALS
     Indication: VOMITING IN PREGNANCY
     Dosage: 6 G, QD
     Route: 048
     Dates: start: 20070206
  5. ABILIFY [Suspect]
     Active Substance: ARIPIPRAZOLE
     Indication: SCHIZOPHRENIA
     Dosage: 6 MG, QD
     Route: 048
     Dates: start: 20060726, end: 20061031
  6. FLUNITRAZEPAM [Suspect]
     Active Substance: FLUNITRAZEPAM
     Indication: INSOMNIA
     Dosage: 1 MG, QD
     Route: 048
     Dates: start: 20060703
  7. ABILIFY [Suspect]
     Active Substance: ARIPIPRAZOLE
     Dosage: 12 MG, QD
     Route: 048
     Dates: start: 20061101
  8. LORAZEPAM. [Concomitant]
     Active Substance: LORAZEPAM
     Indication: SCHIZOPHRENIA
     Dosage: 1 MG, QD
     Route: 048
     Dates: start: 20060712, end: 20070222
  9. HANGE-KOBOKU-TO [Concomitant]
     Indication: VOMITING IN PREGNANCY
     Route: 048
     Dates: start: 20070209, end: 20070309
  10. COLD REMEDY [Concomitant]
     Indication: NASOPHARYNGITIS
     Dosage: 3 G, UNK
     Route: 048
     Dates: start: 20070113, end: 20070117

REACTIONS (3)
  - Pregnancy [Unknown]
  - Abortion [Recovered/Resolved]
  - Exposure during pregnancy [Unknown]

NARRATIVE: CASE EVENT DATE: 20070228
